FAERS Safety Report 13181636 (Version 1)
Quarter: 2017Q1

REPORT INFORMATION
  Report Type: Spontaneous
  Country: IT (occurrence: IT)
  Receive Date: 20170202
  Receipt Date: 20170202
  Transmission Date: 20170428
  Serious: Yes (Hospitalization)
  Sender: FDA-Public Use
  Company Number: IT-IMPAX LABORATORIES, INC-2017-IPXL-00182

PATIENT
  Age: 71 Year
  Sex: Male

DRUGS (7)
  1. ASPIRIN. [Concomitant]
     Active Substance: ASPIRIN
     Indication: CARDIOVASCULAR EVENT PROPHYLAXIS
     Dosage: 100 MG, DAILY FOR 2 YEARS
     Route: 065
  2. OMEPRAZOLE DELAYED RELEASE [Suspect]
     Active Substance: OMEPRAZOLE
     Indication: ABDOMINAL PAIN UPPER
     Dosage: 40MG/10ML DILUTED IN 100 ML OF NACL 0.9% SOLUTION, SINGLE
     Route: 042
  3. HYDROCHLOROTHIAZIDE. [Concomitant]
     Active Substance: HYDROCHLOROTHIAZIDE
     Indication: HYPERTENSION
     Dosage: 25 MG, DAILY FOR 2 YEARS
     Route: 065
  4. NADROPARIN [Concomitant]
     Active Substance: NADROPARIN
     Indication: CARDIOVASCULAR EVENT PROPHYLAXIS
     Dosage: 11400 IU, 1 /DAY
     Route: 058
  5. ASPIRIN. [Concomitant]
     Active Substance: ASPIRIN
     Indication: OBESITY
  6. TRAZODONE [Concomitant]
     Active Substance: TRAZODONE HYDROCHLORIDE
     Indication: DEPRESSION
     Dosage: 75 MG, DAILY FOR 5 YEARS
     Route: 065
  7. RAMIPRIL. [Concomitant]
     Active Substance: RAMIPRIL
     Indication: HYPERTENSION
     Dosage: 5 MG, DAILY FOR 4 YEARS
     Route: 065

REACTIONS (1)
  - Myopathy [Recovered/Resolved]
